FAERS Safety Report 5481627-5 (Version None)
Quarter: 2007Q4

REPORT INFORMATION
  Report Type: 
  Country: None (occurrence: None)
  Receive Date: 20071004
  Receipt Date: 20070926
  Transmission Date: 20080405
  Serious: Yes (Life-Threatening, Hospitalization)
  Sender: FDA-Public Use
  Company Number: 2007SP016893

PATIENT
  Age: 30 Year
  Sex: Male
  Weight: 90.7194 kg

DRUGS (2)
  1. PEG-INTRON [Suspect]
     Indication: POLYCYTHAEMIA VERA
     Dosage: 96 MCG; QW; SC
     Route: 058
     Dates: start: 20070719, end: 20070816
  2. ZOLOFT [Concomitant]

REACTIONS (4)
  - BLOOD PRESSURE SYSTOLIC INCREASED [None]
  - CHEST PAIN [None]
  - INFLUENZA LIKE ILLNESS [None]
  - TROPONIN INCREASED [None]
